FAERS Safety Report 25412874 (Version 2)
Quarter: 2025Q2

REPORT INFORMATION
  Report Type: Spontaneous
  Country: BR (occurrence: None)
  Receive Date: 20250609
  Receipt Date: 20250613
  Transmission Date: 20250716
  Serious: Yes (Death, Other)
  Sender: INCYTE
  Company Number: BR-INCYTE CORPORATION-2025IN006233

PATIENT
  Age: 80 Year

DRUGS (2)
  1. TAFASITAMAB [Suspect]
     Active Substance: TAFASITAMAB
     Indication: Diffuse large B-cell lymphoma
  2. LENALIDOMIDE [Concomitant]
     Active Substance: LENALIDOMIDE
     Indication: Diffuse large B-cell lymphoma
     Route: 065

REACTIONS (2)
  - Cardiac arrest [Fatal]
  - Sepsis [Fatal]
